FAERS Safety Report 16269402 (Version 1)
Quarter: 2019Q2

REPORT INFORMATION
  Report Type: Spontaneous
  Country: US (occurrence: US)
  Receive Date: 20190329
  Receipt Date: 20190329
  Transmission Date: 20190711
  Serious: Yes (Life-Threatening)
  Sender: FDA-Public Use
  Company Number: None

PATIENT
  Sex: Female

DRUGS (1)
  1. AZO YEAST PLUS 60 CT TABLETS [Suspect]
     Active Substance: HOMEOPATHICS

REACTIONS (1)
  - Apparent life threatening event [None]

NARRATIVE: CASE EVENT DATE: 20190224
